FAERS Safety Report 7653908-8 (Version None)
Quarter: 2011Q3

REPORT INFORMATION
  Report Type: 
  Country: None (occurrence: None)
  Receive Date: 20110803
  Receipt Date: 20110727
  Transmission Date: 20111222
  Serious: Yes (Other)
  Sender: FDA-Public Use
  Company Number: US-ELI_LILLY_AND_COMPANY-US200906006010

PATIENT
  Sex: Male
  Weight: 149.66 kg

DRUGS (11)
  1. LISINOPRIL [Concomitant]
     Dosage: 5 MG, QD
     Route: 048
  2. SINGULAIR [Concomitant]
     Dosage: 10 MG, EACH EVENING
     Route: 048
  3. ALLEGRA [Concomitant]
     Dosage: 180 MG, QD
     Route: 048
  4. GLUCOPHAGE [Concomitant]
     Dosage: 1000 MG, BID
     Route: 048
  5. TRILEPTAL [Concomitant]
     Dosage: 600 MG, BID
     Route: 048
  6. ALBUTEROL [Concomitant]
     Dosage: 90 UG, PRN
     Route: 055
  7. DIVALPROEX SODIUM [Concomitant]
     Dosage: 1000 MG, BID
     Route: 048
  8. FLONASE [Concomitant]
     Dosage: 0.5 NG, QD
     Route: 045
  9. ALBUTEROL SULFATE AUTOHALER [Concomitant]
     Dosage: 0.083 %, PRN
     Route: 055
  10. FLOVENT HFA [Concomitant]
     Dosage: 88 UG, BID
     Route: 055
  11. BYETTA [Suspect]
     Dosage: 5 UG, BID
     Route: 058
     Dates: start: 20081003, end: 20100101

REACTIONS (3)
  - PANCREATIC INJURY [None]
  - RENAL INJURY [None]
  - ABDOMINAL PAIN UPPER [None]
